FAERS Safety Report 8484240-0 (Version None)
Quarter: 2012Q3

REPORT INFORMATION
  Report Type: 
  Country: None (occurrence: None)
  Receive Date: 20120703
  Receipt Date: 20120621
  Transmission Date: 20120928
  Serious: No
  Sender: FDA-Public Use
  Company Number: US-JNJFOC-20120612691

PATIENT
  Sex: Female
  Weight: 81.65 kg

DRUGS (3)
  1. AN UNKNOWN MEDICATION [Concomitant]
     Route: 065
  2. INVEGA [Suspect]
     Indication: BIPOLAR DISORDER
     Route: 048
     Dates: start: 20070921, end: 20120501
  3. INVEGA [Suspect]
     Route: 048
     Dates: start: 20120501

REACTIONS (1)
  - TREMOR [None]
